FAERS Safety Report 24013495 (Version 3)
Quarter: 2024Q3

REPORT INFORMATION
  Report Type: Spontaneous
  Country: GB (occurrence: GB)
  Receive Date: 20240626
  Receipt Date: 20240724
  Transmission Date: 20241016
  Serious: Yes (Hospitalization, Other)
  Sender: CELLTRION
  Company Number: GB-CELLTRION INC.-2024GB015494

PATIENT

DRUGS (3)
  1. YUFLYMA [Suspect]
     Active Substance: ADALIMUMAB-AATY
     Indication: Crohn^s disease
     Dosage: 40MG PEN PK2
     Route: 058
     Dates: start: 202406
  2. YUFLYMA [Suspect]
     Active Substance: ADALIMUMAB-AATY
     Dosage: STARTED ON YUFLYMA IN HOSPITAL AFTER 10 DAYS - HAD INDUCTION DOSE OF 160MG (4X 40 MG PENS) ON 20/06/
     Route: 058
     Dates: start: 20240620
  3. YUFLYMA [Suspect]
     Active Substance: ADALIMUMAB-AATY
     Dosage: 40MG PEN
     Route: 058
     Dates: start: 202405

REACTIONS (12)
  - Crohn^s disease [Not Recovered/Not Resolved]
  - COVID-19 [Not Recovered/Not Resolved]
  - Joint swelling [Not Recovered/Not Resolved]
  - Feeling abnormal [Unknown]
  - Malaise [Recovering/Resolving]
  - Inflammation [Unknown]
  - Palpitations [Recovering/Resolving]
  - Tremor [Recovering/Resolving]
  - Nocturia [Unknown]
  - Peripheral swelling [Not Recovered/Not Resolved]
  - Dehydration [Unknown]
  - Intentional dose omission [Unknown]
